FAERS Safety Report 17057502 (Version 2)
Quarter: 2020Q1

REPORT INFORMATION
  Report Type: Other
  Country: DE (occurrence: DE)
  Receive Date: 20191121
  Receipt Date: 20200131
  Transmission Date: 20200409
  Serious: Yes (Hospitalization, Other)
  Sender: FDA-Public Use
  Company Number: DE-CELLTRION INC.-2019DE026511

PATIENT

DRUGS (63)
  1. RITUXIMAB (UNKNOWN) [Suspect]
     Active Substance: RITUXIMAB
     Dosage: 653 MG, (INFUSION RATE 2.5 ML/MIN FROM 15:20 TO 17:50)
     Route: 041
     Dates: start: 20181114, end: 20181114
  2. RITUXIMAB (UNKNOWN) [Suspect]
     Active Substance: RITUXIMAB
     Dosage: 656 MG, (INFUSION RATE 5.5 ML/MIN FROM 10:20 TO 11:50)
     Route: 041
     Dates: start: 20181016, end: 20181016
  3. RITUXIMAB (UNKNOWN) [Suspect]
     Active Substance: RITUXIMAB
     Dosage: 656 MG, (INFUSION RATE 5.5 ML/MIN FROM 10:15 TO 11:45)
     Route: 041
     Dates: start: 20181002, end: 20181002
  4. VINCRISTINE [Suspect]
     Active Substance: VINCRISTINE
     Dosage: 1 MG, (INFUSION RATE 20 ML/MIN FROM 13:25 TO 13:30)
     Route: 041
     Dates: start: 20180918, end: 20180918
  5. CYCLOPHOSPHAMIDE. [Suspect]
     Active Substance: CYCLOPHOSPHAMIDE
     Dosage: 1312 MG, (INFUSION RATE 8 ML/MIN FROM 13:40 TO 14:40)
     Route: 041
     Dates: start: 20180918, end: 20180918
  6. ONDANSETRON [Concomitant]
     Active Substance: ONDANSETRON
     Indication: PRODUCT USED FOR UNKNOWN INDICATION
     Dosage: 8 MG, UNK
     Route: 042
     Dates: start: 20180917
  7. RITUXIMAB (UNKNOWN) [Suspect]
     Active Substance: RITUXIMAB
     Dosage: 652 MG, (INFUSION RATE 4.2 ML/MIN FROM 11:15 TO 13:50)
     Route: 041
     Dates: start: 20190102
  8. RITUXIMAB (UNKNOWN) [Suspect]
     Active Substance: RITUXIMAB
     Dosage: 652 MG, UNK
     Route: 041
     Dates: start: 20181219, end: 20181219
  9. VINCRISTINE [Suspect]
     Active Substance: VINCRISTINE
     Dosage: 1 MG, (INFUSION RATE 0.2 ML/MIN FROM 13:25 TO 13:30)
     Route: 041
     Dates: start: 20181030, end: 20181030
  10. VINCRISTINE [Suspect]
     Active Substance: VINCRISTINE
     Dosage: 1 MG, (INFUSION RATE 20 ML/MIN FROM 13:30 TO 13:35)
     Route: 041
     Dates: start: 20181205, end: 20181205
  11. PREDNISONE. [Suspect]
     Active Substance: PREDNISONE
     Dosage: 100 MG, UNK
     Route: 048
     Dates: start: 20181219, end: 20181219
  12. DECORTIN [Concomitant]
     Active Substance: PREDNISONE
     Indication: PRODUCT USED FOR UNKNOWN INDICATION
     Dosage: UNK
     Route: 048
     Dates: start: 20180917
  13. TAVOR (LORAZEPAM) [Concomitant]
     Active Substance: LORAZEPAM
     Indication: PRODUCT USED FOR UNKNOWN INDICATION
     Dosage: 0.5 OT, UNK
     Route: 048
     Dates: start: 2008
  14. NEULASTA [Concomitant]
     Active Substance: PEGFILGRASTIM
     Indication: PRODUCT USED FOR UNKNOWN INDICATION
     Dosage: 6 MG, FS  SOLUTION
     Route: 023
     Dates: start: 20180917
  15. RITUXIMAB (UNKNOWN) [Suspect]
     Active Substance: RITUXIMAB
     Dosage: 653 MG, (INFUSION RATE 2.5 ML/MIN FROM 15:20 TO 17:50)
     Route: 041
     Dates: start: 20181114, end: 20181114
  16. RITUXIMAB (UNKNOWN) [Suspect]
     Active Substance: RITUXIMAB
     Dosage: 652 MG, (INFUSION RATE 5 ML/MIN FROM 10:45 TO 12:20)
     Route: 041
     Dates: start: 20181205, end: 20181205
  17. VINCRISTINE [Suspect]
     Active Substance: VINCRISTINE
     Indication: DIFFUSE LARGE B-CELL LYMPHOMA
     Dosage: 1 MG, (INFUSION RATE 0.2 ML/MIN FROM 13:05 TO 13:15)
     Route: 041
     Dates: start: 20181016, end: 20181016
  18. VINCRISTINE [Suspect]
     Active Substance: VINCRISTINE
     Dosage: 1 MG, (INFUSION RATE 0.2 ML/MIN FROM 13:25 TO 13:30)
     Route: 041
     Dates: start: 20181002, end: 20181002
  19. DOXORUBICIN [Suspect]
     Active Substance: DOXORUBICIN
     Dosage: 87.5 MG, (INFUSION RATE 09 ML/MIN FROM 12:50 TO 13:00)
     Route: 041
     Dates: start: 20181016, end: 20181016
  20. PREDNISONE. [Suspect]
     Active Substance: PREDNISONE
     Dosage: 500 MG, UNK
     Route: 048
     Dates: start: 20181016, end: 20181020
  21. PREDNISONE. [Suspect]
     Active Substance: PREDNISONE
     Dosage: 500 MG, UNK
     Route: 048
     Dates: start: 20181205, end: 20181209
  22. CYCLOPHOSPHAMIDE. [Suspect]
     Active Substance: CYCLOPHOSPHAMIDE
     Dosage: 1312 MG, (INFUSION RATE 8.3 ML/MIN FROM 09:10 TO 10:10)
     Route: 041
     Dates: start: 20181002, end: 20181002
  23. COTRIM FORTE [Concomitant]
     Active Substance: SULFAMETHOXAZOLE\TRIMETHOPRIM
     Indication: PRODUCT USED FOR UNKNOWN INDICATION
     Dosage: 960 MG, UNK
     Route: 048
     Dates: start: 20180917
  24. RITUXIMAB (UNKNOWN) [Suspect]
     Active Substance: RITUXIMAB
     Dosage: 656 MG, (INFUSION RATE 2.3 ML/MIN FROM 13:50 TO 17:30)
     Route: 041
     Dates: start: 20180917, end: 20180917
  25. RITUXIMAB (UNKNOWN) [Suspect]
     Active Substance: RITUXIMAB
     Dosage: 656 MG, (INFUSION RATE 2.3 ML/MIN FROM 13:50 TO 17:30)
     Route: 041
     Dates: start: 20180917, end: 20180917
  26. RITUXIMAB (UNKNOWN) [Suspect]
     Active Substance: RITUXIMAB
     Dosage: 652 MG, (INFUSION RATE 4.2 ML/MIN FROM 11:15 TO 13:50)
     Route: 041
     Dates: start: 20190102
  27. RITUXIMAB (UNKNOWN) [Suspect]
     Active Substance: RITUXIMAB
     Dosage: 656 MG, (INFUSION RATE 5.5 ML/MIN FROM 10:15 TO 11:45)
     Route: 041
     Dates: start: 20181002, end: 20181002
  28. VINCRISTINE [Suspect]
     Active Substance: VINCRISTINE
     Dosage: 1 MG, (INFUSION RATE 0.2 ML/MIN FROM 20:30 TO 20:35)
     Route: 041
     Dates: start: 20181114, end: 20181114
  29. DOXORUBICIN [Suspect]
     Active Substance: DOXORUBICIN
     Dosage: 87 MG, (INFUSION RATE 10 ML/MIN FROM 13:10 TO 13:20)
     Route: 041
     Dates: start: 20180918, end: 20180918
  30. PREDNISONE. [Suspect]
     Active Substance: PREDNISONE
     Dosage: 1000 MG, UNK
     Route: 048
     Dates: start: 20180912, end: 20180916
  31. CYCLOPHOSPHAMIDE. [Suspect]
     Active Substance: CYCLOPHOSPHAMIDE
     Dosage: 1305 MG, (INFUSION RATE 8.3 ML/MIN FROM 19:00 TO 20:00)
     Route: 041
     Dates: start: 20181114, end: 20181114
  32. CIPROFLOXACIN. [Concomitant]
     Active Substance: CIPROFLOXACIN
     Indication: PRODUCT USED FOR UNKNOWN INDICATION
  33. RITUXIMAB (UNKNOWN) [Suspect]
     Active Substance: RITUXIMAB
     Dosage: 656 MG, (INFUSION RATE 5.5 ML/MIN FROM 10:20 TO 11:50)
     Route: 041
     Dates: start: 20181016, end: 20181016
  34. RITUXIMAB (UNKNOWN) [Suspect]
     Active Substance: RITUXIMAB
     Dosage: 652 MG, (INFUSION RATE 5 ML/MIN FROM 10:45 TO 12:20)
     Route: 041
     Dates: start: 20181205, end: 20181205
  35. RITUXIMAB (UNKNOWN) [Suspect]
     Active Substance: RITUXIMAB
     Dosage: 652 MG, UNK
     Route: 041
     Dates: start: 20181219, end: 20181219
  36. DOXORUBICIN [Suspect]
     Active Substance: DOXORUBICIN
     Indication: DIFFUSE LARGE B-CELL LYMPHOMA
     Dosage: 87 MG, (INFUSION RATE 10 ML/MIN FROM 20:20 TO 20:30)
     Route: 041
     Dates: start: 20181114, end: 20181114
  37. PREDNISONE. [Suspect]
     Active Substance: PREDNISONE
     Dosage: 100 MG, UNK
     Route: 048
     Dates: start: 20190102, end: 20190102
  38. CIPROFLOXACIN. [Concomitant]
     Active Substance: CIPROFLOXACIN
     Indication: URINARY TRACT INFECTION
     Dosage: 250 OT, UNK
     Route: 048
     Dates: start: 20180917
  39. UROMITEXAN [Concomitant]
     Active Substance: MESNA
     Indication: PRODUCT USED FOR UNKNOWN INDICATION
     Dosage: 260 MG, UNK
     Route: 042
     Dates: start: 20180917
  40. RITUXIMAB (UNKNOWN) [Suspect]
     Active Substance: RITUXIMAB
     Dosage: 652 MG, UNK
     Route: 041
     Dates: start: 20181219, end: 20181219
  41. DOXORUBICIN [Suspect]
     Active Substance: DOXORUBICIN
     Dosage: 87 MG, (INFUSION RATE 20 ML/MIN FROM 13:20 TO 13:25)
     Route: 041
     Dates: start: 20181205, end: 20181205
  42. DOXORUBICIN [Suspect]
     Active Substance: DOXORUBICIN
     Dosage: 87.5 MG, (INFUSION RATE 10 ML/MIN FROM 13:25 TO 13:35)
     Route: 041
     Dates: start: 20181030, end: 20181030
  43. PREDNISONE. [Suspect]
     Active Substance: PREDNISONE
     Indication: DIFFUSE LARGE B-CELL LYMPHOMA
     Dosage: 500 MG, UNK
     Route: 048
     Dates: start: 20181002, end: 20181006
  44. CYCLOPHOSPHAMIDE. [Suspect]
     Active Substance: CYCLOPHOSPHAMIDE
     Indication: DIFFUSE LARGE B-CELL LYMPHOMA
     Dosage: 1305 MG, (INFUSION RATE 8.3 ML/MIN FROM 09:30 TO 10:30)
     Route: 041
     Dates: start: 20181205, end: 20181205
  45. PREDNISOLON [PREDNISOLONE] [Concomitant]
     Active Substance: PREDNISOLONE
     Indication: PRODUCT USED FOR UNKNOWN INDICATION
     Dosage: 50 MG, UNK
     Route: 048
     Dates: start: 20180917
  46. SIMVASTATIN. [Concomitant]
     Active Substance: SIMVASTATIN
     Indication: PRODUCT USED FOR UNKNOWN INDICATION
     Dosage: 20 MG, UNK
     Route: 048
     Dates: start: 2008
  47. ACICLOVIR [Concomitant]
     Active Substance: ACYCLOVIR
     Indication: PRODUCT USED FOR UNKNOWN INDICATION
     Dosage: UNK
     Route: 048
     Dates: start: 20180917
  48. RITUXIMAB (UNKNOWN) [Suspect]
     Active Substance: RITUXIMAB
     Dosage: 656 MG, (INFUSION RATE 4.1 ML/MIN FROM 09:20 TO 11:00)
     Route: 041
     Dates: start: 20181030, end: 20181030
  49. PREDNISONE. [Suspect]
     Active Substance: PREDNISONE
     Dosage: 500 MG, UNK
     Route: 048
     Dates: start: 20181114, end: 20181118
  50. PANTOPRAZOL [PANTOPRAZOLE SODIUM SESQUIHYDRATE] [Concomitant]
     Active Substance: PANTOPRAZOLE SODIUM
     Indication: PROPHYLAXIS
     Dosage: 20 MG, UNK
     Route: 048
     Dates: start: 2008
  51. MORPHINE [Concomitant]
     Active Substance: MORPHINE
     Indication: PRODUCT USED FOR UNKNOWN INDICATION
     Dosage: UNK
     Route: 048
     Dates: start: 20181109, end: 20181116
  52. RITUXIMAB (UNKNOWN) [Suspect]
     Active Substance: RITUXIMAB
     Indication: DIFFUSE LARGE B-CELL LYMPHOMA
     Dosage: 656 MG, (INFUSION RATE 4.1 ML/MIN FROM 09:20 TO 11:00)
     Route: 041
     Dates: start: 20181030, end: 20181030
  53. RITUXIMAB (UNKNOWN) [Suspect]
     Active Substance: RITUXIMAB
     Dosage: 656 MG, (INFUSION RATE 4.1 ML/MIN FROM 09:20 TO 11:00)
     Route: 041
     Dates: start: 20181030, end: 20181030
  54. RITUXIMAB (UNKNOWN) [Suspect]
     Active Substance: RITUXIMAB
     Dosage: 656 MG, (INFUSION RATE 4.1 ML/MIN FROM 09:20 TO 11:00)
     Route: 041
     Dates: start: 20181030, end: 20181030
  55. RITUXIMAB (UNKNOWN) [Suspect]
     Active Substance: RITUXIMAB
     Dosage: 656 MG, (INFUSION RATE 5.5 ML/MIN FROM 10:20 TO 11:50)
     Route: 041
     Dates: start: 20181016, end: 20181016
  56. RITUXIMAB (UNKNOWN) [Suspect]
     Active Substance: RITUXIMAB
     Dosage: 652 MG, (INFUSION RATE 5 ML/MIN FROM 10:45 TO 12:20)
     Route: 041
     Dates: start: 20181205, end: 20181205
  57. RITUXIMAB (UNKNOWN) [Suspect]
     Active Substance: RITUXIMAB
     Dosage: 656 MG, (INFUSION RATE 2.3 ML/MIN FROM 13:50 TO 17:30)
     Route: 041
     Dates: start: 20180917, end: 20180917
  58. RITUXIMAB (UNKNOWN) [Suspect]
     Active Substance: RITUXIMAB
     Dosage: 652 MG, (INFUSION RATE 4.2 ML/MIN FROM 11:15 TO 13:50)
     Route: 041
     Dates: start: 20190102
  59. RITUXIMAB (UNKNOWN) [Suspect]
     Active Substance: RITUXIMAB
     Dosage: 652 MG, UNK
     Route: 041
     Dates: start: 20181219, end: 20181219
  60. DOXORUBICIN [Suspect]
     Active Substance: DOXORUBICIN
     Dosage: 87.5 MG, (INFUSION RATE 10 ML/MIN FROM 13:10 TO 13:20)
     Route: 041
     Dates: start: 20181002, end: 20181002
  61. PREDNISONE. [Suspect]
     Active Substance: PREDNISONE
     Dosage: 500 MG, UNK
     Route: 048
     Dates: start: 20181030, end: 20181103
  62. CYCLOPHOSPHAMIDE. [Suspect]
     Active Substance: CYCLOPHOSPHAMIDE
     Dosage: 1312 MG, (INFUSION RATE 8.3 ML/MIN FROM 12:00 TO 13:00)
     Route: 041
     Dates: start: 20181030, end: 20181030
  63. CYCLOPHOSPHAMIDE. [Suspect]
     Active Substance: CYCLOPHOSPHAMIDE
     Dosage: 1312 MG, (INFUSION RATE 8.3 ML/MIN FROM 09:10 TO 10:10)
     Route: 041
     Dates: start: 20181016, end: 20181016

REACTIONS (18)
  - Circulatory collapse [Recovered/Resolved]
  - Pancytopenia [Recovered/Resolved]
  - Paraesthesia [Recovered/Resolved]
  - Product use issue [Unknown]
  - Muscle spasms [Recovered/Resolved]
  - Dizziness [Recovered/Resolved]
  - Vomiting [Recovered/Resolved]
  - Pancytopenia [Recovered/Resolved]
  - Anaemia [Recovered/Resolved]
  - Decreased appetite [Recovered/Resolved]
  - Dysphagia [Recovered/Resolved]
  - Nausea [Recovered/Resolved]
  - Dry mouth [Recovered/Resolved]
  - Oropharyngeal pain [Recovered/Resolved]
  - Fatigue [Not Recovered/Not Resolved]
  - Hyperhidrosis [Recovered/Resolved]
  - Depression [Not Recovered/Not Resolved]
  - Rash [Recovered/Resolved]

NARRATIVE: CASE EVENT DATE: 20180927
